FAERS Safety Report 8188364-7 (Version None)
Quarter: 2012Q1

REPORT INFORMATION
  Report Type: 
  Country: None (occurrence: None)
  Receive Date: 20120221
  Receipt Date: 20110117
  Transmission Date: 20120608
  Serious: Yes (Other)
  Sender: FDA-Public Use
  Company Number: PHHY2011US04068

PATIENT
  Age: 28 Year
  Sex: Female

DRUGS (3)
  1. TOBRAMYCIN [Concomitant]
  2. TOBI [Suspect]
     Indication: CYSTIC FIBROSIS
     Dosage: INHALATION
     Route: 055
  3. FORTAZ [Concomitant]

REACTIONS (8)
  - INFECTIVE PULMONARY EXACERBATION OF CYSTIC FIBROSIS [None]
  - STOMATITIS [None]
  - PAIN [None]
  - ORAL PAIN [None]
  - DIZZINESS [None]
  - DEAFNESS [None]
  - FATIGUE [None]
  - ORAL DISCOMFORT [None]
